FAERS Safety Report 5852899-X (Version None)
Quarter: 2008Q3

REPORT INFORMATION
  Report Type: 
  Country: None (occurrence: None)
  Receive Date: 20080815
  Receipt Date: 20080117
  Transmission Date: 20090109
  Serious: No
  Sender: FDA-Public Use
  Company Number: 08H-163-0313747-00

PATIENT
  Age: 73 Year
  Sex: Female

DRUGS (8)
  1. VANCOMYCIN [Suspect]
     Indication: DRUG USE FOR UNKNOWN INDICATION
     Dosage: 1 GM, ONCE, INTRAVENOUS PIGGY BACK
     Dates: start: 20080110, end: 20080110
  2. COUMADIN [Concomitant]
  3. VYTORIN [Concomitant]
  4. DIOVAN [Concomitant]
  5. PROTONIX [Concomitant]
  6. NORVASC [Concomitant]
  7. BENADRYL [Concomitant]
  8. CLONIDINE [Concomitant]

REACTIONS (2)
  - ERYTHEMA [None]
  - PRURITUS [None]
